FAERS Safety Report 9246347 (Version 6)
Quarter: 2015Q1

REPORT INFORMATION
  Report Type: Spontaneous
  Country: US (occurrence: US)
  Receive Date: 20130422
  Receipt Date: 20150313
  Transmission Date: 20150721
  Serious: No
  Sender: FDA-Public Use
  Company Number: US-009507513-1304USA011008

PATIENT
  Sex: Male
  Weight: 78.46 kg

DRUGS (1)
  1. PROPECIA [Suspect]
     Active Substance: FINASTERIDE
     Indication: ALOPECIA
     Dosage: 1 MG, QD
     Route: 048
     Dates: start: 20000712, end: 20020912

REACTIONS (22)
  - Headache [Recovered/Resolved]
  - Breast enlargement [Unknown]
  - Gastrooesophageal reflux disease [Unknown]
  - Testicular disorder [Unknown]
  - Tension headache [Recovered/Resolved]
  - Hyperlipidaemia [Unknown]
  - Penis injury [Unknown]
  - Eczema [Recovered/Resolved]
  - Libido decreased [Not Recovered/Not Resolved]
  - Diabetes mellitus [Unknown]
  - Drug ineffective [Unknown]
  - Glaucoma [Unknown]
  - Genital hypoaesthesia [Unknown]
  - Scab [Unknown]
  - Penile size reduced [Unknown]
  - Semen volume decreased [Unknown]
  - Erectile dysfunction [Not Recovered/Not Resolved]
  - Hypogonadism [Unknown]
  - Hormone level abnormal [Unknown]
  - Brain injury [Unknown]
  - Sexual dysfunction [Not Recovered/Not Resolved]
  - Hypertension [Unknown]

NARRATIVE: CASE EVENT DATE: 20000805
